FAERS Safety Report 8425521-6 (Version None)
Quarter: 2012Q2

REPORT INFORMATION
  Report Type: 
  Country: None (occurrence: None)
  Receive Date: 20120611
  Receipt Date: 20120530
  Transmission Date: 20120825
  Serious: No
  Sender: FDA-Public Use
  Company Number: US-CELGENEUS-163-21880-12031278

PATIENT
  Sex: Female
  Weight: 94.8 kg

DRUGS (1)
  1. REVLIMID [Suspect]
     Indication: MULTIPLE MYELOMA
     Dosage: 10 MILLIGRAM
     Route: 048
     Dates: start: 20110131

REACTIONS (4)
  - WHITE BLOOD CELL COUNT DECREASED [None]
  - ASTHENIA [None]
  - DYSPNOEA [None]
  - FULL BLOOD COUNT DECREASED [None]
